FAERS Safety Report 5507068-X (Version None)
Quarter: 2007Q4

REPORT INFORMATION
  Report Type: 
  Country: None (occurrence: None)
  Receive Date: 20071102
  Receipt Date: 20071029
  Transmission Date: 20080405
  Serious: Yes (Other)
  Sender: FDA-Public Use
  Company Number: 2007334040

PATIENT
  Age: 23 Year
  Sex: Female
  Weight: 44.5 kg

DRUGS (2)
  1. VISINE EYE DROPS [Suspect]
  2. ZYRTEC [Concomitant]

REACTIONS (4)
  - DISORIENTATION [None]
  - DYSPNOEA [None]
  - MYOCARDIAL INFARCTION [None]
  - POISONING [None]
